FAERS Safety Report 7586387-X (Version None)
Quarter: 2011Q3

REPORT INFORMATION
  Report Type: 
  Country: None (occurrence: None)
  Receive Date: 20110701
  Receipt Date: 20110623
  Transmission Date: 20111222
  Serious: Yes (Hospitalization, Disabling)
  Sender: FDA-Public Use
  Company Number: A0932733A

PATIENT
  Age: 42 Year
  Sex: Female

DRUGS (2)
  1. PAXIL CR [Suspect]
     Indication: PANIC DISORDER
     Dosage: 25MG PER DAY
     Route: 048
     Dates: start: 20100105
  2. CLONAZEPAM [Concomitant]

REACTIONS (13)
  - SUICIDE ATTEMPT [None]
  - MUSCULAR WEAKNESS [None]
  - PARAESTHESIA [None]
  - ALTERED VISUAL DEPTH PERCEPTION [None]
  - NIGHT SWEATS [None]
  - WEIGHT INCREASED [None]
  - DISABILITY [None]
  - PANIC ATTACK [None]
  - AMNESIA [None]
  - NAUSEA [None]
  - FATIGUE [None]
  - MOOD SWINGS [None]
  - INSOMNIA [None]
